FAERS Safety Report 15154607 (Version 2)
Quarter: 2019Q3

REPORT INFORMATION
  Report Type: Report from Study
  Country: IT (occurrence: IT)
  Receive Date: 20180717
  Receipt Date: 20190820
  Transmission Date: 20191004
  Serious: Yes (Congenital Anomaly, Other)
  Sender: FDA-Public Use
  Company Number: IT-TEVA-2018-IT-926277

PATIENT

DRUGS (1)
  1. GABAPENTIN. [Suspect]
     Active Substance: GABAPENTIN
     Route: 064

REACTIONS (3)
  - Foetal exposure during pregnancy [Unknown]
  - Small for dates baby [Unknown]
  - Ventricular septal defect [Unknown]
